FAERS Safety Report 6696307-8 (Version None)
Quarter: 2010Q2

REPORT INFORMATION
  Report Type: 
  Country: None (occurrence: None)
  Receive Date: 20100426
  Receipt Date: 20100421
  Transmission Date: 20101027
  Serious: Yes (Death, Life-Threatening, Hospitalization)
  Sender: FDA-Public Use
  Company Number: BE-SANOFI-AVENTIS-2010SA023269

PATIENT
  Age: 56 Year
  Sex: Male
  Weight: 52 kg

DRUGS (3)
  1. TAXOTERE [Suspect]
     Indication: OESOPHAGEAL NEOPLASM
     Route: 041
     Dates: start: 20100324, end: 20100324
  2. CISPLATIN [Concomitant]
     Indication: OESOPHAGEAL NEOPLASM
     Route: 042
     Dates: start: 20100324, end: 20100324
  3. FLUOROURACIL [Concomitant]
     Indication: OESOPHAGEAL NEOPLASM
     Route: 042
     Dates: start: 20100324, end: 20100327

REACTIONS (2)
  - ENCEPHALOPATHY [None]
  - SEPSIS [None]
